FAERS Safety Report 12105480 (Version 1)
Quarter: 2016Q1

REPORT INFORMATION
  Report Type: Spontaneous
  Country: FR (occurrence: FR)
  Receive Date: 20160223
  Receipt Date: 20160223
  Transmission Date: 20160526
  Serious: Yes (Other)
  Sender: FDA-Public Use
  Company Number: FR-ELI_LILLY_AND_COMPANY-FR201602007088

PATIENT

DRUGS (7)
  1. GEMCITABINE HYDROCHLORIDE. [Suspect]
     Active Substance: GEMCITABINE HYDROCHLORIDE
     Indication: NON-SMALL CELL LUNG CANCER
     Dosage: 1500 MG/M2, UNKNOWN
     Route: 042
  2. MESNA. [Suspect]
     Active Substance: MESNA
     Indication: NON-SMALL CELL LUNG CANCER
     Dosage: 3000 MG/M2, CYCLICAL
     Route: 042
  3. METHYLPREDNISOLONE. [Concomitant]
     Active Substance: METHYLPREDNISOLONE
     Indication: PROPHYLAXIS OF NAUSEA AND VOMITING
     Dosage: UNK, UNKNOWN
     Route: 065
  4. MESNA. [Suspect]
     Active Substance: MESNA
     Dosage: 1000 MG/M2, CYCLICAL
     Route: 048
  5. CISPLATIN. [Suspect]
     Active Substance: CISPLATIN
     Indication: NON-SMALL CELL LUNG CANCER
     Dosage: 100 MG/M2, CYCLICAL
     Route: 042
  6. SETRON                             /00955302/ [Concomitant]
     Indication: PROPHYLAXIS OF NAUSEA AND VOMITING
  7. IFOSFAMIDE. [Suspect]
     Active Substance: IFOSFAMIDE
     Indication: NON-SMALL CELL LUNG CANCER
     Dosage: 3000 MG/M2, CYCLICAL
     Route: 042

REACTIONS (1)
  - Neurotoxicity [Unknown]
